FAERS Safety Report 4972810-3 (Version None)
Quarter: 2006Q2

REPORT INFORMATION
  Report Type: 
  Country: None (occurrence: None)
  Receive Date: 20060414
  Receipt Date: 20050808
  Transmission Date: 20061013
  Serious: Yes (Death, Hospitalization)
  Sender: FDA-Public Use
  Company Number: US-BRISTOL-MYERS SQUIBB COMPANY-13067293

PATIENT
  Age: 83 Year
  Sex: Male

DRUGS (12)
  1. TAXOL [Suspect]
     Indication: LUNG CANCER METASTATIC
     Dosage: 1ST DOSE ADMINISTERED 01-AUG-2005.
     Route: 042
     Dates: start: 20050801, end: 20050801
  2. CARBOPLATIN [Suspect]
     Indication: LUNG CANCER METASTATIC
     Dosage: 1ST DOSE ADMINISTERED ON 01-AUG-2005.
     Route: 042
     Dates: start: 20050801, end: 20050801
  3. ATENOLOL [Concomitant]
     Dates: start: 20050501, end: 20050807
  4. HYDROCHLOROTHIAZIDE [Concomitant]
     Dates: start: 20050501, end: 20050807
  5. ATIVAN [Concomitant]
     Dates: start: 20050729
  6. LESCOL [Concomitant]
     Dates: start: 20050501, end: 20050807
  7. HYDROCODONE [Concomitant]
  8. MS CONTIN [Concomitant]
     Dates: start: 20050725, end: 20050811
  9. ACETAMINOPHEN AND HYDROCODONE BITARTRATE [Concomitant]
     Dates: end: 20050807
  10. RANITIDINE HCL [Concomitant]
     Dates: start: 20050501, end: 20050807
  11. PROMETHAZINE [Concomitant]
     Dates: start: 20050729, end: 20050807
  12. OXYGEN [Concomitant]
     Dates: start: 20050615

REACTIONS (3)
  - NEUTROPENIA [None]
  - PNEUMONIA [None]
  - RESPIRATORY FAILURE [None]
